FAERS Safety Report 26187568 (Version 1)
Quarter: 2025Q4

REPORT INFORMATION
  Report Type: Spontaneous
  Country: US (occurrence: US)
  Receive Date: 20251222
  Receipt Date: 20251222
  Transmission Date: 20260118
  Serious: No
  Sender: MERCK SHARP & DOHME LLC
  Company Number: US-009507513-2360053

PATIENT
  Age: 34 Year
  Sex: Male

DRUGS (5)
  1. ERTAPENEM [Suspect]
     Active Substance: ERTAPENEM
     Indication: Aeromonas infection
  2. OSIMERTINIB [Concomitant]
     Active Substance: OSIMERTINIB
     Indication: Pleural effusion
  3. NOREPINEPHRINE [Concomitant]
     Active Substance: NOREPINEPHRINE
     Indication: Blood pressure decreased
  4. ALTEPLASE [Concomitant]
     Active Substance: ALTEPLASE
     Indication: Empyema
     Route: 034
  5. STREPTODORNASE\STREPTOKINASE [Concomitant]
     Active Substance: STREPTODORNASE\STREPTOKINASE
     Indication: Empyema
     Route: 034

REACTIONS (1)
  - Product use in unapproved indication [Unknown]
